FAERS Safety Report 9792078 (Version 1)
Quarter: 2014Q1

REPORT INFORMATION
  Report Type: Spontaneous
  Country: US (occurrence: US)
  Receive Date: 20140102
  Receipt Date: 20140102
  Transmission Date: 20141002
  Serious: Yes (Other)
  Sender: FDA-Public Use
  Company Number: US-PFIZER INC-2013371070

PATIENT
  Age: 49 Year
  Sex: Female

DRUGS (3)
  1. CARBOPLATIN [Suspect]
     Indication: OVARIAN EPITHELIAL CANCER
     Dosage: 300 MG/M2, CYCLIC ON DAY 1
  2. GRANULOCYTE MACROPHAGE COLONY STIM FACTOR [Suspect]
     Indication: OVARIAN EPITHELIAL CANCER
     Dosage: 10 UG/KG, 2X/DAY (EVERY 12 HOURS ON DAYS -6 TO -2 AND DAYS 2 TO 15 THREE WEEKS POSTOPERATIVELY)
  3. CYCLOPHOSPHAMIDE [Concomitant]
     Indication: OVARIAN EPITHELIAL CANCER
     Dosage: 1,000 MG/M2, CYCLIC ON DAY 1

REACTIONS (1)
  - Dermatitis exfoliative [Recovered/Resolved]
